FAERS Safety Report 15425411 (Version 4)
Quarter: 2018Q4

REPORT INFORMATION
  Report Type: Report from Study
  Country: US (occurrence: US)
  Receive Date: 20180925
  Receipt Date: 20181203
  Transmission Date: 20190204
  Serious: Yes (Hospitalization, Other)
  Sender: FDA-Public Use
  Company Number: US-CLOVIS ONCOLOGY-CLO-2018-001292

PATIENT
  Sex: Female

DRUGS (1)
  1. RUBRACA [Suspect]
     Active Substance: RUCAPARIB CAMSYLATE
     Indication: OVARIAN CANCER
     Dosage: 600 MG, BID
     Route: 048
     Dates: start: 20180816, end: 20181104

REACTIONS (16)
  - Ascites [Unknown]
  - Abdominal pain [Unknown]
  - Feeding disorder [Unknown]
  - Tumour marker increased [Unknown]
  - Gastrointestinal disorder [Recovering/Resolving]
  - Dehydration [Recovering/Resolving]
  - Flatulence [Recovered/Resolved]
  - Hypophagia [Recovering/Resolving]
  - Headache [Recovered/Resolved]
  - Flatulence [Unknown]
  - Blood creatinine increased [Unknown]
  - Constipation [Unknown]
  - Heart rate increased [Unknown]
  - Abdominal distension [Not Recovered/Not Resolved]
  - Nausea [Unknown]
  - Drug ineffective [Unknown]

NARRATIVE: CASE EVENT DATE: 2018
